FAERS Safety Report 9846312 (Version 2)
Quarter: 2014Q1

REPORT INFORMATION
  Report Type: Spontaneous
  Country: US (occurrence: US)
  Receive Date: 20140127
  Receipt Date: 20140214
  Transmission Date: 20141002
  Serious: Yes (Other)
  Sender: FDA-Public Use
  Company Number: US-AMGEN-USASP2014005125

PATIENT
  Age: 34 Year
  Sex: Female
  Weight: 102.95 kg

DRUGS (18)
  1. ENBREL [Suspect]
     Indication: RHEUMATOID ARTHRITIS
     Dosage: 50 MG, QWK
     Route: 065
     Dates: start: 2004
  2. XELJANZ [Suspect]
     Indication: RHEUMATOID ARTHRITIS
     Dosage: 5 MG, BID
     Route: 048
     Dates: start: 201309, end: 20131125
  3. CELEBREX [Suspect]
     Indication: INFLAMMATION
     Dosage: 200 MG, BID
     Route: 048
     Dates: end: 20131202
  4. NUVARING [Suspect]
     Indication: CONTRACEPTION
     Dosage: UNK
     Route: 065
  5. HUMIRA [Suspect]
     Indication: PRODUCT USED FOR UNKNOWN INDICATION
     Dosage: UNK
     Route: 065
  6. REMICADE [Suspect]
     Indication: PRODUCT USED FOR UNKNOWN INDICATION
     Route: 065
  7. METHOTREXATE [Concomitant]
     Dosage: 2.5 MG, QWK, 7 TABLETS QWEEK
  8. FOLIC ACID [Concomitant]
     Dosage: 1 MG, QD
  9. ALPRAZOLAM [Concomitant]
     Dosage: 0.5 MG, QHS
  10. FLOVENT HFA [Concomitant]
     Dosage: 44 MUG, UNK
  11. OMEPRAZOLE [Concomitant]
     Dosage: 40 MG, QD
  12. ZYRTEC ALLERGY [Concomitant]
     Dosage: 10 MG, QD
  13. ALBUTEROL HFA [Concomitant]
     Dosage: 2 PUFFS PRN
  14. FISH OIL [Concomitant]
     Dosage: 1200 MG, QD
  15. VITAMIN D3 [Concomitant]
     Dosage: 5000 UNIT, QD
  16. PREDNISONE [Concomitant]
     Dosage: 5 MG, UNK
  17. NORCO [Concomitant]
     Indication: PAIN
     Dosage: UNK, 10-325 MG TABLET 1 TABLET EVERY 4-6 HRS PRN
  18. PRISTIQ [Concomitant]
     Dosage: 100 MG, QD

REACTIONS (8)
  - Pulmonary embolism [Recovering/Resolving]
  - Deep vein thrombosis [Recovering/Resolving]
  - Tachycardia [Unknown]
  - Axillary pain [Unknown]
  - Arthralgia [Recovering/Resolving]
  - Antiphospholipid antibodies positive [Unknown]
  - Dyspnoea exertional [Unknown]
  - Chest pain [Unknown]
